FAERS Safety Report 25021253 (Version 3)
Quarter: 2025Q1

REPORT INFORMATION
  Report Type: Spontaneous
  Country: US (occurrence: US)
  Receive Date: 20250228
  Receipt Date: 20250311
  Transmission Date: 20250409
  Serious: Yes (Hospitalization, Other)
  Sender: GILEAD
  Company Number: US-GILEAD-2025-0704820

PATIENT
  Age: 54 Year
  Sex: Female
  Weight: 92.8 kg

DRUGS (20)
  1. SACITUZUMAB GOVITECAN-HZIY [Suspect]
     Active Substance: SACITUZUMAB GOVITECAN-HZIY
     Indication: Cholangiocarcinoma
     Route: 042
     Dates: start: 20250204
  2. SACITUZUMAB GOVITECAN-HZIY [Suspect]
     Active Substance: SACITUZUMAB GOVITECAN-HZIY
     Route: 042
     Dates: start: 20250211
  3. XANAX [Concomitant]
     Active Substance: ALPRAZOLAM
  4. AMLODIPINE [Concomitant]
     Active Substance: AMLODIPINE BESYLATE
  5. WELLBUTRIN [Concomitant]
     Active Substance: BUPROPION HYDROCHLORIDE
  6. COREG [Concomitant]
     Active Substance: CARVEDILOL
  7. PEPCID [Concomitant]
     Active Substance: FAMOTIDINE
  8. FENOFIBRATE [Concomitant]
     Active Substance: FENOFIBRATE
  9. ENULOSE [Concomitant]
     Active Substance: LACTULOSE
  10. SYNTHROID [Concomitant]
     Active Substance: LEVOTHYROXINE SODIUM
  11. LISINOPRIL [Concomitant]
     Active Substance: LISINOPRIL
  12. ZOFRAN [Concomitant]
     Active Substance: ONDANSETRON HYDROCHLORIDE
  13. MIRALAX [Concomitant]
     Active Substance: POLYETHYLENE GLYCOL 3350
  14. PROCHLORPERAZINE EDISYLATE [Concomitant]
     Active Substance: PROCHLORPERAZINE EDISYLATE
  15. ATIVAN [Concomitant]
     Active Substance: LORAZEPAM
  16. CRESTOR [Concomitant]
     Active Substance: ROSUVASTATIN CALCIUM
  17. SENOKOT [Concomitant]
     Active Substance: SENNOSIDES
  18. KLOR-CON M20 [Concomitant]
     Active Substance: POTASSIUM CHLORIDE
  19. VANCOMYCIN [Concomitant]
     Active Substance: VANCOMYCIN
  20. ZOSYN [Concomitant]
     Active Substance: PIPERACILLIN SODIUM\TAZOBACTAM SODIUM

REACTIONS (13)
  - Acute kidney injury [Unknown]
  - Hypovolaemia [Unknown]
  - Febrile neutropenia [Unknown]
  - Hypokalaemia [Unknown]
  - Hyponatraemia [Unknown]
  - Enteritis [Unknown]
  - Diarrhoea [Recovering/Resolving]
  - Vomiting [Unknown]
  - Abdominal pain [Recovering/Resolving]
  - Abdominal distension [Recovering/Resolving]
  - Constipation [Unknown]
  - Asthenia [Unknown]
  - Product use in unapproved indication [Unknown]

NARRATIVE: CASE EVENT DATE: 20250219
